FAERS Safety Report 8249936-4 (Version None)
Quarter: 2012Q2

REPORT INFORMATION
  Report Type: 
  Country: None (occurrence: None)
  Receive Date: 20120402
  Receipt Date: 20120323
  Transmission Date: 20120825
  Serious: Yes (Hospitalization)
  Sender: FDA-Public Use
  Company Number: US-BAYER-US-SHR-03-003204

PATIENT
  Age: 29 Year
  Sex: Female
  Weight: 115.19 kg

DRUGS (6)
  1. PROZAC [Concomitant]
     Indication: OBSESSIVE-COMPULSIVE DISORDER
  2. RISPERDAL [Concomitant]
     Dosage: 1 MG, HS
     Route: 048
  3. KLONOPIN [Concomitant]
     Dosage: 2 MG, HS
     Route: 048
  4. IRON [Concomitant]
     Dosage: 325 MG, QD
     Route: 048
  5. YASMIN [Suspect]
     Indication: ORAL CONTRACEPTION
     Dosage: 1 TABLET, 1X/DAY
     Route: 048
     Dates: start: 20020601, end: 20030115
  6. LUVOX [Concomitant]
     Dosage: 100 MG OM, 300 MG AT NIGHT
     Route: 048

REACTIONS (2)
  - DEEP VEIN THROMBOSIS [None]
  - PULMONARY EMBOLISM [None]
